FAERS Safety Report 5136871-3 (Version None)
Quarter: 2006Q4

REPORT INFORMATION
  Report Type: 
  Country: None (occurrence: None)
  Receive Date: 20061023
  Receipt Date: 20061011
  Transmission Date: 20070319
  Serious: Yes (Life-Threatening)
  Sender: FDA-Public Use
  Company Number: CIP06002401

PATIENT
  Age: 72 Year
  Sex: Female

DRUGS (14)
  1. DANTRIUM [Suspect]
     Indication: NEUROLEPTIC MALIGNANT SYNDROME
     Dosage: 20 MG TWICE DAILY, IV NOS
     Route: 042
     Dates: start: 20060908, end: 20060915
  2. DANTRIUM [Suspect]
     Indication: NEUROLEPTIC MALIGNANT SYNDROME
     Dosage: 20 MG TWICE DAILY, IV NOS
     Route: 042
     Dates: start: 20060919, end: 20060926
  3. MADOPAR(LEVODOPA, BENSERAZIDE HYDROCHLORIDE) [Suspect]
     Indication: PARKINSON'S DISEASE
     Dosage: 5 DOSAGE FORMS DAILY - DIVIDED IN 3 DOSES, ORAL
     Route: 048
     Dates: start: 20021001
  4. AMAZOLON (AMANTADINE HYDROCHLORIDE) [Concomitant]
  5. DOPS (DROXIDOPA) [Concomitant]
  6. PERGOLIDE MESYLATE [Concomitant]
  7. SOLDEM 3 (SODIUM LACTATE, SODIUM CHLORIDE, POTASSIUM CHLORIDE, GLUCOSE [Concomitant]
  8. DEXTROSE [Concomitant]
  9. SOLDOL E (SENNOSIDE A+B) [Concomitant]
  10. MAGNESIUM OXIDE (MAGNESIUM OXIDE) [Concomitant]
  11. EURAX ^CIBA-GEIGY^ (CROTAMITON) [Concomitant]
  12. ETHANOL (ETHANOL) [Concomitant]
  13. ISOTONIC SOLUTIONS [Concomitant]
  14. PENMALIN (PIPERACILLIN SODIUM) [Concomitant]

REACTIONS (7)
  - ACARODERMATITIS [None]
  - GASTRIC ULCER HAEMORRHAGE [None]
  - HAEMATOCRIT DECREASED [None]
  - HAEMOGLOBIN DECREASED [None]
  - NEUROLEPTIC MALIGNANT SYNDROME [None]
  - RED BLOOD CELL COUNT DECREASED [None]
  - URINARY TRACT INFECTION [None]
